FAERS Safety Report 4575365-0 (Version None)
Quarter: 2005Q1

REPORT INFORMATION
  Report Type: 
  Country: None (occurrence: None)
  Receive Date: 20050127
  Receipt Date: 20050127
  Transmission Date: 20050727
  Serious: No
  Sender: FDA-Public Use
  Company Number: None

PATIENT
  Age: 39 Year
  Sex: Female
  Weight: 48.5349 kg

DRUGS (1)
  1. HALOPERIDOL [Suspect]
     Dosage: 5MG   IM     (DURATION: 1 DOSE)
     Route: 030

REACTIONS (7)
  - COGWHEEL RIGIDITY [None]
  - DROOLING [None]
  - JOINT HYPEREXTENSION [None]
  - JOINT RANGE OF MOTION DECREASED [None]
  - JOINT STIFFNESS [None]
  - MUSCLE RIGIDITY [None]
  - TREMOR [None]
